FAERS Safety Report 7809290-6 (Version None)
Quarter: 2011Q4

REPORT INFORMATION
  Report Type: 
  Country: None (occurrence: None)
  Receive Date: 20111012
  Receipt Date: 20111006
  Transmission Date: 20120403
  Serious: Yes (Death, Hospitalization)
  Sender: FDA-Public Use
  Company Number: DE-SANOFI-AVENTIS-2011SA065688

PATIENT
  Age: 58 Year
  Sex: Male

DRUGS (8)
  1. CISPLATIN [Suspect]
     Indication: HEAD AND NECK CANCER
     Route: 041
  2. FLUOROURACIL [Suspect]
     Indication: HEAD AND NECK CANCER
     Route: 041
  3. FLUOROURACIL [Suspect]
     Route: 041
  4. DOCETAXEL [Suspect]
     Indication: HEAD AND NECK CANCER
     Route: 041
  5. CETUXIMAB [Suspect]
     Indication: HEAD AND NECK CANCER
     Route: 041
     Dates: start: 20110603, end: 20110603
  6. CETUXIMAB [Suspect]
     Route: 041
     Dates: start: 20110826, end: 20110826
  7. DOCETAXEL [Suspect]
     Route: 041
  8. CISPLATIN [Suspect]
     Route: 041

REACTIONS (2)
  - HYPOKALAEMIA [None]
  - DISEASE PROGRESSION [None]
